FAERS Safety Report 9569050 (Version 1)
Quarter: 2013Q3

REPORT INFORMATION
  Report Type: Spontaneous
  Country: US (occurrence: US)
  Receive Date: 20130930
  Receipt Date: 20130930
  Transmission Date: 20140515
  Serious: No
  Sender: FDA-Public Use
  Company Number: US-AMGEN-USASP2013060344

PATIENT
  Age: 57 Year
  Sex: Female
  Weight: 88.89 kg

DRUGS (14)
  1. ENBREL [Suspect]
     Indication: PRODUCT USED FOR UNKNOWN INDICATION
     Dosage: 50 MG, QWK
     Route: 058
  2. METHOTREXATE [Concomitant]
     Dosage: UNK
  3. PLAQUENIL                          /00072602/ [Concomitant]
     Dosage: 200 MG, UNK
  4. CELEBREX [Concomitant]
     Dosage: 200 MG, UNK
  5. ALLEGRA [Concomitant]
     Dosage: 30 MG, UNK
  6. FOLIC ACID [Concomitant]
     Dosage: 1 MG, UNK
  7. HYDROCHLOROTH [Concomitant]
     Dosage: 25 MG, UNK
  8. FLONASE                            /00908302/ [Concomitant]
     Dosage: SPR 0.05 %, UNK
  9. VITAMIN C                          /00008001/ [Concomitant]
     Dosage: 500 MG, TD
  10. VITAMIN B-12 [Concomitant]
     Dosage: 1000 MCG, UNK
  11. CALCIUM [Concomitant]
     Dosage: 600 UNK, UNK
  12. FISH OIL [Concomitant]
     Dosage: UNK
  13. VITAMIN D                          /00107901/ [Concomitant]
     Dosage: 1000 UNIT, UNK
  14. MULTIVITAMINS, PLAIN [Concomitant]
     Dosage: UNK

REACTIONS (1)
  - Skin discolouration [Unknown]
